FAERS Safety Report 25649884 (Version 1)
Quarter: 2025Q3

REPORT INFORMATION
  Report Type: Report from Study
  Country: US (occurrence: US)
  Receive Date: 20250806
  Receipt Date: 20250806
  Transmission Date: 20251020
  Serious: Yes (Other)
  Sender: ESTEVE
  Company Number: US-Esteve Pharmaceuticals SA-2181939

PATIENT
  Sex: Male

DRUGS (3)
  1. LYSODREN [Suspect]
     Active Substance: MITOTANE
     Indication: Adrenal neoplasm
     Dates: start: 20210319
  2. LYSODREN [Suspect]
     Active Substance: MITOTANE
     Dates: start: 20210319
  3. POTASSIUM [Concomitant]
     Active Substance: POTASSIUM

REACTIONS (4)
  - Intentional dose omission [Unknown]
  - Vertigo [Not Recovered/Not Resolved]
  - Decreased appetite [Not Recovered/Not Resolved]
  - Dementia [Not Recovered/Not Resolved]
